FAERS Safety Report 24013854 (Version 1)
Quarter: 2024Q2

REPORT INFORMATION
  Report Type: Report from Study
  Country: US (occurrence: US)
  Receive Date: 20240626
  Receipt Date: 20240626
  Transmission Date: 20240715
  Serious: Yes (Other)
  Sender: FDA-Public Use
  Company Number: US-JNJFOC-20230329899

PATIENT
  Age: 43 Year
  Sex: Male

DRUGS (2)
  1. STELARA [Suspect]
     Active Substance: USTEKINUMAB
     Indication: Psoriasis
     Route: 058
     Dates: start: 20100701, end: 20110103
  2. STELARA [Suspect]
     Active Substance: USTEKINUMAB
     Dosage: THERAPY END DATE WAS REPORTED AS 22-AUG-2016
     Route: 058
     Dates: start: 20110317

REACTIONS (2)
  - Basal cell carcinoma [Unknown]
  - Sinusitis [Unknown]

NARRATIVE: CASE EVENT DATE: 20111123
